FAERS Safety Report 23983166 (Version 1)
Quarter: 2024Q2

REPORT INFORMATION
  Report Type: Spontaneous
  Country: CA (occurrence: CA)
  Receive Date: 20240617
  Receipt Date: 20240617
  Transmission Date: 20240716
  Serious: Yes (Hospitalization, Other)
  Sender: FDA-Public Use
  Company Number: CA-FreseniusKabi-FK202409171

PATIENT
  Age: 1 Month
  Sex: Male
  Weight: 3 kg

DRUGS (2)
  1. MORPHINE [Suspect]
     Active Substance: MORPHINE
     Indication: Product used for unknown indication
     Dosage: FREQUENCY: ONCE?ROUTE: INTRAVENOUS (NOT OTHERWISE SPECIFIED)?DOSAGE FORM: NOT SPECIFIED
  2. ACETAMINOPHEN [Concomitant]
     Active Substance: ACETAMINOPHEN
     Indication: Product used for unknown indication
     Dosage: NOT SPECIFIED

REACTIONS (4)
  - Hypoventilation [Recovered/Resolved]
  - Incorrect dose administered [Recovered/Resolved]
  - Oxygen saturation decreased [Recovered/Resolved]
  - Somnolence [Recovered/Resolved]
